FAERS Safety Report 6116579-8 (Version None)
Quarter: 2009Q1

REPORT INFORMATION
  Report Type: 
  Country: None (occurrence: None)
  Receive Date: 20090314
  Receipt Date: 20081216
  Transmission Date: 20090719
  Serious: No
  Sender: FDA-Public Use
  Company Number: US-ABBOTT-08P-163-0493730-00

PATIENT
  Sex: Female
  Weight: 97.61 kg

DRUGS (13)
  1. HUMIRA [Suspect]
     Indication: RHEUMATOID ARTHRITIS
     Dates: start: 20080401
  2. HUMIRA [Suspect]
     Indication: PSORIASIS
  3. APIDRA [Concomitant]
     Indication: BLOOD GLUCOSE
     Dosage: SLIDING SCALE
  4. LEVAMIR [Concomitant]
     Indication: DIABETES MELLITUS
  5. CALTRATE + D [Concomitant]
     Indication: VITAMIN D DEFICIENCY
     Dates: start: 20081201
  6. ELESTAT [Concomitant]
     Indication: EYE PRURITUS
     Route: 031
  7. PLAVIX [Concomitant]
     Indication: CEREBROVASCULAR ACCIDENT
  8. ASPIRIN [Concomitant]
     Indication: DRUG USE FOR UNKNOWN INDICATION
     Dosage: 2/DAY-ONCE A DAY
  9. TEKTURNA [Concomitant]
     Indication: DRUG USE FOR UNKNOWN INDICATION
  10. FUROSEMIDE [Concomitant]
     Indication: SWELLING
  11. NISEDIPINE [Concomitant]
     Indication: DRUG USE FOR UNKNOWN INDICATION
  12. WELCHOL [Concomitant]
     Indication: BLOOD CHOLESTEROL
  13. PREVACID [Concomitant]
     Indication: GASTRIC DISORDER

REACTIONS (10)
  - BLOOD GLUCOSE FLUCTUATION [None]
  - CATARACT [None]
  - ERYTHEMA [None]
  - FATIGUE [None]
  - GASTRIC ULCER [None]
  - OEDEMA PERIPHERAL [None]
  - PRURITUS [None]
  - PSORIASIS [None]
  - SKIN PLAQUE [None]
  - VITAMIN D DECREASED [None]
